FAERS Safety Report 5766291-X (Version None)
Quarter: 2008Q2

REPORT INFORMATION
  Report Type: 
  Country: None (occurrence: None)
  Receive Date: 20080606
  Receipt Date: 20080522
  Transmission Date: 20081010
  Serious: Yes (Death)
  Sender: FDA-Public Use
  Company Number: 2008AL005851

PATIENT
  Age: 75 Year
  Sex: Male

DRUGS (3)
  1. DIGOXIN [Suspect]
     Indication: CARDIAC FAILURE CONGESTIVE
     Dosage: 0.125 MG DAILY PO
     Route: 048
     Dates: start: 20020101
  2. POTASSIUM CHLORIDE [Concomitant]
  3. LASIX [Concomitant]

REACTIONS (2)
  - CARDIOMEGALY [None]
  - HEART RATE IRREGULAR [None]
